FAERS Safety Report 15010503 (Version 1)
Quarter: 2018Q2

REPORT INFORMATION
  Report Type: Spontaneous
  Country: US (occurrence: US)
  Receive Date: 20180614
  Receipt Date: 20180614
  Transmission Date: 20180711
  Serious: Yes (Other)
  Sender: FDA-Public Use
  Company Number: US-ASTRAZENECA-2018SE76385

PATIENT
  Age: 65 Year
  Sex: Female

DRUGS (1)
  1. FORXIGA [Suspect]
     Active Substance: DAPAGLIFLOZIN
     Route: 048
     Dates: start: 20150319

REACTIONS (5)
  - Diabetic ketoacidosis [Unknown]
  - Urinary tract infection [Unknown]
  - Acute kidney injury [Unknown]
  - Sepsis [Unknown]
  - Hyperglycaemia [Unknown]
